FAERS Safety Report 23889672 (Version 1)
Quarter: 2024Q2

REPORT INFORMATION
  Report Type: Spontaneous
  Country: JP (occurrence: JP)
  Receive Date: 20240523
  Receipt Date: 20240523
  Transmission Date: 20240716
  Serious: Yes (Death)
  Sender: FDA-Public Use
  Company Number: JP-PFIZER INC-202400172670

PATIENT

DRUGS (1)
  1. PAXLOVID [Suspect]
     Active Substance: NIRMATRELVIR\RITONAVIR
     Indication: COVID-19 treatment
     Dosage: UNK
     Route: 048
     Dates: start: 202402, end: 202402

REACTIONS (3)
  - COVID-19 [Fatal]
  - Drug ineffective for unapproved indication [Fatal]
  - Off label use [Unknown]

NARRATIVE: CASE EVENT DATE: 20240201
